FAERS Safety Report 8006072-X (Version None)
Quarter: 2011Q4

REPORT INFORMATION
  Report Type: 
  Country: None (occurrence: None)
  Receive Date: 20111226
  Receipt Date: 20111219
  Transmission Date: 20120403
  Serious: Yes (Death)
  Sender: FDA-Public Use
  Company Number: HK-ACCORD-011711

PATIENT

DRUGS (2)
  1. BEVACIZUMAB [Suspect]
     Indication: GLIOMA
     Route: 042
  2. IRINOTECAN HCL [Suspect]
     Indication: GLIOMA
     Route: 042

REACTIONS (2)
  - PULMONARY EMBOLISM [None]
  - OFF LABEL USE [None]
